FAERS Safety Report 4601023-X (Version None)
Quarter: 2005Q1

REPORT INFORMATION
  Report Type: 
  Country: None (occurrence: None)
  Receive Date: 20050127
  Receipt Date: 20041110
  Transmission Date: 20050727
  Serious: No
  Sender: FDA-Public Use
  Company Number: USA041183776

PATIENT
  Age: 52 Year
  Sex: Male
  Weight: 73 kg

DRUGS (8)
  1. STRATTERA [Suspect]
     Indication: ATTENTION DEFICIT/HYPERACTIVITY DISORDER
     Dosage: 60 MG DAY
     Dates: start: 20040801, end: 20041109
  2. DEPAKOTE [Concomitant]
  3. NEXIUM [Concomitant]
  4. VIREAD [Concomitant]
  5. LEXIVA (FOSAMPRENAVIR) [Concomitant]
  6. VIDEX [Concomitant]
  7. NORVIR [Concomitant]
  8. ADDERALL 10 [Concomitant]

REACTIONS (9)
  - DEFAECATION URGENCY [None]
  - DYSURIA [None]
  - EJACULATION DISORDER [None]
  - LIBIDO DECREASED [None]
  - PENILE DISCHARGE [None]
  - POLLAKIURIA [None]
  - SEMEN VISCOSITY INCREASED [None]
  - SEXUAL INHIBITION [None]
  - URINE FLOW DECREASED [None]
